FAERS Safety Report 19078427 (Version 1)
Quarter: 2021Q1

REPORT INFORMATION
  Report Type: Spontaneous
  Country: AR (occurrence: AR)
  Receive Date: 20210331
  Receipt Date: 20210331
  Transmission Date: 20210420
  Serious: Yes (Other)
  Sender: FDA-Public Use
  Company Number: AR-PFIZER INC-2021252464

PATIENT
  Age: 69 Year
  Sex: Male

DRUGS (1)
  1. XELJANZ [Suspect]
     Active Substance: TOFACITINIB CITRATE
     Indication: RHEUMATOID ARTHRITIS
     Dosage: 5 MG, 2X/DAY
     Dates: start: 20170502

REACTIONS (5)
  - Gait disturbance [Not Recovered/Not Resolved]
  - Osteoporosis [Unknown]
  - Arthropathy [Not Recovered/Not Resolved]
  - Spinal disorder [Unknown]
  - Pain [Unknown]
